FAERS Safety Report 4582202-7 (Version None)
Quarter: 2005Q1

REPORT INFORMATION
  Report Type: 
  Country: None (occurrence: None)
  Receive Date: 20050214
  Receipt Date: 20050201
  Transmission Date: 20050727
  Serious: Yes (Hospitalization)
  Sender: FDA-Public Use
  Company Number: GXBR2005US00499

PATIENT
  Sex: Male

DRUGS (5)
  1. ATENOLOL [Suspect]
     Indication: ANGINA PECTORIS
     Dates: start: 20041223
  2. COVERSYL [Suspect]
     Dates: start: 20041224, end: 20041228
  3. ASPEGIC 1000 [Suspect]
     Dates: start: 20041223
  4. ZOCOR [Suspect]
     Dates: start: 20041223
  5. PLAVIX [Suspect]
     Dates: start: 20041223, end: 20041229

REACTIONS (1)
  - ANGIONEUROTIC OEDEMA [None]
